FAERS Safety Report 21654592 (Version 2)
Quarter: 2024Q3

REPORT INFORMATION
  Report Type: Spontaneous
  Country: US (occurrence: US)
  Receive Date: 20221129
  Receipt Date: 20240705
  Transmission Date: 20241017
  Serious: Yes (Other)
  Sender: NOVO NORDISK
  Company Number: US-NOVOPROD-983258

PATIENT
  Age: 56 Year
  Sex: Female

DRUGS (1)
  1. OZEMPIC [Suspect]
     Active Substance: SEMAGLUTIDE
     Indication: Obesity
     Dosage: UNK
     Route: 058

REACTIONS (7)
  - Arthropathy [Unknown]
  - Fibromyalgia [Unknown]
  - Back disorder [Unknown]
  - Arthropathy [Unknown]
  - Foot fracture [Unknown]
  - Pain [Unknown]
  - Product use in unapproved indication [Recovered/Resolved]
